FAERS Safety Report 24083351 (Version 1)
Quarter: 2024Q3

REPORT INFORMATION
  Report Type: Spontaneous
  Country: US (occurrence: US)
  Receive Date: 20240712
  Receipt Date: 20240712
  Transmission Date: 20241016
  Serious: Yes (Hospitalization)
  Sender: MYLAN
  Company Number: US-MYLANLABS-2024M1064025

PATIENT
  Age: 29 Year
  Sex: Male

DRUGS (4)
  1. HEPARIN [Suspect]
     Active Substance: HEPARIN SODIUM
     Indication: Thrombosis prophylaxis
     Dosage: UNK, INITIAL DOSE: 7UNITS/KG/H (BOLUS DOSE)
     Route: 042
  2. HEPARIN [Suspect]
     Active Substance: HEPARIN SODIUM
     Indication: Anticoagulant therapy
     Dosage: DOSE AT TIME OF LUNG TRANSPLANT WAS 1300 UNITS
     Route: 042
  3. BIVALIRUDIN [Suspect]
     Active Substance: BIVALIRUDIN
     Indication: Thrombosis prophylaxis
     Dosage: INITIAL DOSE: 0.1UNITS/KG/H
     Route: 065
  4. BIVALIRUDIN [Suspect]
     Active Substance: BIVALIRUDIN
     Indication: Anticoagulant therapy
     Dosage: 0.12 UNITS/KG/H; TOTAL THERAPY DURATION WAS 101 DAYS
     Route: 065

REACTIONS (4)
  - Catheter site haemorrhage [Unknown]
  - Endotracheal intubation complication [Unknown]
  - Bloody discharge [Unknown]
  - Drug ineffective [Unknown]
